FAERS Safety Report 5632654-6 (Version None)
Quarter: 2008Q1

REPORT INFORMATION
  Report Type: 
  Country: None (occurrence: None)
  Receive Date: 20080220
  Receipt Date: 20080211
  Transmission Date: 20080703
  Serious: Yes (Hospitalization)
  Sender: FDA-Public Use
  Company Number: FR-PFIZER INC-2008013558

PATIENT
  Sex: Female

DRUGS (5)
  1. INSPRA [Suspect]
     Indication: CARDIAC FAILURE
     Route: 048
     Dates: start: 20070906, end: 20071005
  2. PREVISCAN [Concomitant]
     Indication: CARDIAC FAILURE
     Route: 048
  3. ATENOLOL [Concomitant]
     Indication: CARDIAC FAILURE
     Route: 048
  4. FUROSEMIDE [Concomitant]
     Indication: CARDIAC FAILURE
     Route: 048
  5. HEMIGOXINE NATIVELLE [Concomitant]
     Indication: CARDIAC FAILURE
     Dosage: TEXT:1 DOSE FORM
     Route: 048

REACTIONS (2)
  - LEUKOCYTOCLASTIC VASCULITIS [None]
  - PURPURA [None]
